FAERS Safety Report 11277188 (Version 1)
Quarter: 2015Q3

REPORT INFORMATION
  Report Type: Spontaneous
  Country: None (occurrence: SE)
  Receive Date: 20150716
  Receipt Date: 20150716
  Transmission Date: 20151125
  Serious: Yes (Hospitalization)
  Sender: FDA-Public Use
  Company Number: SE-TEVA-578281ISR

PATIENT
  Age: 80 Year
  Sex: Female

DRUGS (1)
  1. QUETIAPINE 25MG [Suspect]
     Active Substance: QUETIAPINE
     Route: 065

REACTIONS (1)
  - Nausea [Recovered/Resolved]
